FAERS Safety Report 6981675-X (Version None)
Quarter: 2010Q3

REPORT INFORMATION
  Report Type: 
  Country: None (occurrence: None)
  Receive Date: 20100914
  Receipt Date: 20090831
  Transmission Date: 20110219
  Serious: No
  Sender: FDA-Public Use
  Company Number: US-PFIZER INC-2009265366

PATIENT
  Sex: Male
  Weight: 63.5 kg

DRUGS (2)
  1. LYRICA [Suspect]
     Indication: FIBROMYALGIA
     Dosage: 50 MG, 3X/DAY
     Route: 048
     Dates: start: 20090825
  2. ALENDRONATE SODIUM [Concomitant]
     Dosage: UNK

REACTIONS (1)
  - ERECTILE DYSFUNCTION [None]
